FAERS Safety Report 6295050-7 (Version None)
Quarter: 2009Q3

REPORT INFORMATION
  Report Type: 
  Country: None (occurrence: None)
  Receive Date: 20090803
  Receipt Date: 20090724
  Transmission Date: 20100115
  Serious: Yes (Hospitalization)
  Sender: FDA-Public Use
  Company Number: US-ELI_LILLY_AND_COMPANY-US200903004028

PATIENT
  Sex: Female
  Weight: 96.599 kg

DRUGS (24)
  1. BYETTA [Suspect]
     Indication: TYPE 2 DIABETES MELLITUS
     Dosage: 5 UG, 2/D
     Route: 058
     Dates: start: 20080812, end: 20081101
  2. BYETTA [Suspect]
     Dosage: 5 UG, 2/D
     Route: 058
     Dates: start: 20090109
  3. TORADOL [Concomitant]
     Dosage: UNK, MONTHLY (1/M)
  4. BONIVA [Concomitant]
     Indication: OSTEOPOROSIS
     Dosage: UNK, OTHER
     Route: 042
     Dates: start: 20070101
  5. ADVAIR HFA [Concomitant]
     Indication: HYPERSENSITIVITY
     Dosage: UNK, 2/D
     Route: 055
  6. ALTACE [Concomitant]
     Indication: HYPERTENSION
     Dosage: 10 MG, DAILY (1/D)
     Dates: start: 19980101
  7. AMBIEN [Concomitant]
     Indication: INSOMNIA
     Dosage: 10 MG, AS NEEDED
     Dates: start: 20060101
  8. CLONIDINE [Concomitant]
     Indication: HYPERTENSION
     Dosage: 0.1 MG, UNKNOWN
     Dates: start: 19990101
  9. COMBIVENT [Concomitant]
     Indication: HYPERSENSITIVITY
     Dosage: UNK, UNKNOWN
     Route: 055
     Dates: start: 20060101
  10. DIAZIDE [Concomitant]
     Indication: HYPERTENSION
     Dosage: 37.5 MG, DAILY (1/D)
     Dates: start: 19990101
  11. INDERAL [Concomitant]
     Indication: HYPERTENSION
     Dosage: 160 MG, DAILY (1/D)
     Dates: start: 19990101
  12. KLOR-CON [Concomitant]
     Indication: ELECTROLYTE SUBSTITUTION THERAPY
     Dosage: 20 MEQ, DAILY (1/D)
     Dates: start: 20060101
  13. LASIX [Concomitant]
     Indication: HYPERTENSION
     Dosage: 40 MG, 2/D
     Dates: start: 20060101
  14. LEVOTHYROXINE SODIUM [Concomitant]
     Indication: THYROID HORMONE REPLACEMENT THERAPY
     Dosage: 0.5 UG, DAILY (1/D)
     Dates: start: 20040101
  15. LORTAB [Concomitant]
     Indication: BACK PAIN
     Dosage: 10 MG, 3/D
  16. FLEXERIL [Concomitant]
     Indication: BACK PAIN
     Dosage: 10 MG, 3/D
  17. SINGULAIR [Concomitant]
     Indication: CHRONIC OBSTRUCTIVE PULMONARY DISEASE
     Dosage: 10 MG, DAILY (1/D)
     Dates: start: 20060101
  18. XANAX [Concomitant]
     Indication: ANXIETY
     Dosage: 0.5 MG, 4/D
     Dates: start: 19990101
  19. ZOCOR [Concomitant]
     Indication: BLOOD CHOLESTEROL
     Dosage: 40 MG, DAILY (1/D)
     Dates: start: 20040101
  20. CELEBREX [Concomitant]
     Dosage: 200 MG, DAILY (1/D)
     Dates: start: 20020101, end: 20081201
  21. BENICAR [Concomitant]
     Indication: HYPERTENSION
     Dosage: 40 MG, DAILY (1/D)
     Dates: end: 20081201
  22. CITRACAL + D [Concomitant]
     Indication: BLOOD CALCIUM
     Dosage: 500 MG, 3/D
  23. PROTONIX [Concomitant]
     Indication: DYSPEPSIA
     Dosage: 40 MG, DAILY (1/D)
     Dates: start: 20070101
  24. MAXZIDE [Concomitant]
     Dosage: UNK, UNKNOWN

REACTIONS (6)
  - ALOPECIA [None]
  - DELIRIUM [None]
  - RENAL FAILURE ACUTE [None]
  - SEPSIS [None]
  - SOMNOLENCE [None]
  - URINARY TRACT INFECTION [None]
